FAERS Safety Report 16264603 (Version 6)
Quarter: 2020Q2

REPORT INFORMATION
  Report Type: Spontaneous
  Country: US (occurrence: US)
  Receive Date: 20190502
  Receipt Date: 20200422
  Transmission Date: 20200713
  Serious: Yes (Hospitalization)
  Sender: FDA-Public Use
  Company Number: US-PFIZER INC-2019180829

PATIENT
  Age: 59 Year
  Sex: Female
  Weight: 62 kg

DRUGS (12)
  1. BIOTIN [Concomitant]
     Active Substance: BIOTIN
     Dosage: UNK
     Dates: start: 201807
  2. METFORMIN [Concomitant]
     Active Substance: METFORMIN HYDROCHLORIDE
     Indication: DIABETES MELLITUS
     Dosage: UNK (FROM 20MAY2015 OR 2016 )
  3. IBRANCE [Suspect]
     Active Substance: PALBOCICLIB
     Dosage: 125 MG, CYCLIC (ONCE DAILY FOR 21 DAYS, THEN 7 DAYS OFF)
     Route: 048
  4. METFORMIN [Concomitant]
     Active Substance: METFORMIN HYDROCHLORIDE
     Indication: GLUCOSE TOLERANCE IMPAIRED
     Dosage: 500 MG, 1X/DAY
     Dates: start: 2016
  5. CLONAZEPAM. [Concomitant]
     Active Substance: CLONAZEPAM
     Indication: ANXIETY
     Dosage: 1 MG, 2X/DAY
     Dates: start: 2000
  6. IBRANCE [Suspect]
     Active Substance: PALBOCICLIB
     Indication: BREAST CANCER METASTATIC
     Dosage: 125 MG, CYCLIC (21 DAYS ON, THEN OFF A WEEK)
     Route: 048
     Dates: start: 2018
  7. FENTANYL. [Concomitant]
     Active Substance: FENTANYL
     Indication: PAIN
     Dosage: UNK
     Dates: start: 201808
  8. IBRANCE [Suspect]
     Active Substance: PALBOCICLIB
     Dosage: 125 MG, CYCLIC (21 DAYS ON, THEN OFF A WEEK)
     Route: 048
  9. CLONAZEPAM. [Concomitant]
     Active Substance: CLONAZEPAM
     Dosage: UNK
     Dates: start: 2000
  10. OXYCODONE [Concomitant]
     Active Substance: OXYCODONE
     Indication: PAIN
     Dosage: 5 MG, AS NEEDED (5MG, CAN TAKE UP TO 4 TIMES A DAY AS NEEDED)
     Dates: start: 2006
  11. OMEPRAZOLE. [Concomitant]
     Active Substance: OMEPRAZOLE
     Indication: GASTRIC DISORDER
     Dosage: 20 MG, 1X/DAY
     Dates: start: 2018
  12. FASLODEX [Concomitant]
     Active Substance: FULVESTRANT
     Dosage: 2 DF, UNK (2 SHOTS)
     Dates: start: 2018

REACTIONS (13)
  - Malaise [Unknown]
  - Feeling abnormal [Unknown]
  - Nail ridging [Recovered/Resolved]
  - Nail disorder [Recovered/Resolved]
  - Nasal dryness [Unknown]
  - Sinus disorder [Unknown]
  - Pain [Recovering/Resolving]
  - Nail disorder [Unknown]
  - Anaemia [Unknown]
  - Blood disorder [Unknown]
  - Weight fluctuation [Recovered/Resolved]
  - Alopecia [Recovered/Resolved]
  - Sinus pain [Recovering/Resolving]

NARRATIVE: CASE EVENT DATE: 2018
